FAERS Safety Report 7734742-7 (Version None)
Quarter: 2011Q3

REPORT INFORMATION
  Report Type: 
  Country: None (occurrence: None)
  Receive Date: 20110907
  Receipt Date: 20110901
  Transmission Date: 20111222
  Serious: Yes (Hospitalization)
  Sender: FDA-Public Use
  Company Number: IT-BAYER-2011-079860

PATIENT
  Age: 33 Year
  Sex: Female

DRUGS (4)
  1. BLEOMYCIN SULFATE [Suspect]
     Indication: HODGKIN'S DISEASE
     Dosage: 4 CYCLES
     Dates: start: 20070101, end: 20071001
  2. DOXORUBICIN HCL [Suspect]
     Indication: HODGKIN'S DISEASE
     Dosage: 4 CYCLES
     Dates: start: 20070101, end: 20071001
  3. DACARBAZINE [Suspect]
     Indication: HODGKIN'S DISEASE
     Dosage: 4 CYCLES
     Dates: start: 20070101, end: 20071001
  4. VINBLASTINE SULFATE [Suspect]
     Indication: HODGKIN'S DISEASE
     Dosage: 4 CYCLES
     Dates: start: 20070101, end: 20071001

REACTIONS (1)
  - HEPATITIS B [None]
